FAERS Safety Report 9791105 (Version 4)
Quarter: 2014Q1

REPORT INFORMATION
  Report Type: Spontaneous
  Country: US (occurrence: US)
  Receive Date: 20131231
  Receipt Date: 20140331
  Transmission Date: 20141002
  Serious: No
  Sender: FDA-Public Use
  Company Number: US-BIOGENIDEC-2013BI123765

PATIENT
  Age: 30 Year
  Sex: Female

DRUGS (8)
  1. TECFIDERA [Suspect]
     Indication: RELAPSING-REMITTING MULTIPLE SCLEROSIS
     Route: 048
     Dates: start: 20131213, end: 20131214
  2. TECFIDERA [Suspect]
     Indication: RELAPSING-REMITTING MULTIPLE SCLEROSIS
     Route: 048
     Dates: start: 20131221
  3. TECFIDERA [Suspect]
     Indication: RELAPSING-REMITTING MULTIPLE SCLEROSIS
     Dates: end: 201402
  4. BIOTIN [Concomitant]
     Route: 048
  5. FLUOXETINE [Concomitant]
     Route: 048
  6. MECLIZINE [Concomitant]
     Route: 048
  7. VITAMIN B12 [Concomitant]
  8. VITAMIN D3 [Concomitant]
     Route: 048
     Dates: start: 20131209

REACTIONS (12)
  - Swelling face [Not Recovered/Not Resolved]
  - Dizziness [Unknown]
  - Local swelling [Unknown]
  - Hypersensitivity [Unknown]
  - Headache [Unknown]
  - Swelling [Recovered/Resolved]
  - Adverse reaction [Recovered/Resolved]
  - Nasopharyngitis [Recovered/Resolved]
  - Pruritus [Not Recovered/Not Resolved]
  - Flushing [Not Recovered/Not Resolved]
  - Generalised erythema [Recovered/Resolved]
  - Skin burning sensation [Recovered/Resolved]
